FAERS Safety Report 19777220 (Version 3)
Quarter: 2021Q3

REPORT INFORMATION
  Report Type: Report from Study
  Country: CN (occurrence: CN)
  Receive Date: 20210901
  Receipt Date: 20210923
  Transmission Date: 20211014
  Serious: Yes (Hospitalization)
  Sender: FDA-Public Use
  Company Number: NVSC2021CN188030

PATIENT
  Age: 10 Year
  Sex: Female
  Weight: 40.8 kg

DRUGS (7)
  1. VITAMIN D [Concomitant]
     Active Substance: VITAMIN D NOS
     Indication: GENERAL PHYSICAL CONDITION
     Dosage: UNK
     Route: 065
     Dates: start: 20200616
  2. LYSINE + B12 COMP. [Concomitant]
     Indication: GENERAL PHYSICAL CONDITION
     Dosage: UNK
     Route: 065
     Dates: start: 20201201
  3. FINGOLIMOD. [Suspect]
     Active Substance: FINGOLIMOD
     Dosage: 0.5 G, QD
     Route: 048
     Dates: start: 20210827
  4. IDEBENONE [Concomitant]
     Active Substance: IDEBENONE
     Indication: ENERGY INCREASED
     Dosage: UNK
     Route: 065
     Dates: start: 20210201
  5. FINGOLIMOD. [Suspect]
     Active Substance: FINGOLIMOD
     Indication: RELAPSING MULTIPLE SCLEROSIS
     Dosage: 0.5 MG, QD
     Route: 048
     Dates: start: 20210521, end: 20210817
  6. TRILEPTAL [Concomitant]
     Active Substance: OXCARBAZEPINE
     Indication: EPILEPSY
     Dosage: UNK
     Route: 065
     Dates: start: 20190101
  7. UBIDECARENONE. [Concomitant]
     Active Substance: UBIDECARENONE
     Indication: ENERGY INCREASED
     Dosage: UNK
     Route: 065
     Dates: start: 20200616

REACTIONS (2)
  - Tonsillitis [Recovered/Resolved]
  - Seizure [Recovered/Resolved]

NARRATIVE: CASE EVENT DATE: 20210818
